FAERS Safety Report 5950071-6 (Version None)
Quarter: 2008Q4

REPORT INFORMATION
  Report Type: 
  Country: None (occurrence: None)
  Receive Date: 20081112
  Receipt Date: 20081031
  Transmission Date: 20090506
  Serious: Yes (Hospitalization, Other)
  Sender: FDA-Public Use
  Company Number: US-ROCHE-511387

PATIENT
  Sex: Female

DRUGS (6)
  1. PEG-INTERFERON A-2A (RO 25-8310) [Suspect]
     Route: 065
     Dates: start: 20070330
  2. PEG-INTERFERON A-2A (RO 25-8310) [Suspect]
     Route: 065
  3. PEG-INTERFERON A-2A (RO 25-8310) [Suspect]
     Route: 065
     Dates: start: 20080101, end: 20080116
  4. RIBAVIRIN [Suspect]
     Route: 065
     Dates: start: 20070330
  5. RIBAVIRIN [Suspect]
     Dosage: THERAPY WITH REDUCED DOSAGE
     Route: 065
     Dates: start: 20080101, end: 20080116
  6. SYNTHROID [Concomitant]
     Indication: THYROID DISORDER

REACTIONS (12)
  - DEAFNESS [None]
  - DELUSION [None]
  - DEPRESSION [None]
  - EROSIVE OESOPHAGITIS [None]
  - GASTROENTERITIS [None]
  - HYDRONEPHROSIS [None]
  - HYPERTHYROIDISM [None]
  - LYMPHADENOPATHY [None]
  - LYMPHOMA [None]
  - NEPHROLITHIASIS [None]
  - SYSTEMIC LUPUS ERYTHEMATOSUS [None]
  - WRONG TECHNIQUE IN DRUG USAGE PROCESS [None]
